FAERS Safety Report 6020236-6 (Version None)
Quarter: 2008Q4

REPORT INFORMATION
  Report Type: 
  Country: None (occurrence: None)
  Receive Date: 20081226
  Receipt Date: 20081216
  Transmission Date: 20090506
  Serious: Yes (Hospitalization, Other)
  Sender: FDA-Public Use
  Company Number: PHHY2008GB31270

PATIENT
  Sex: Male

DRUGS (3)
  1. CLOZARIL [Suspect]
     Indication: SCHIZOPHRENIA
     Dosage: UNK
     Dates: start: 19960402
  2. CLOZARIL [Suspect]
     Dosage: 775 MG/DAY
  3. CLOZARIL [Suspect]
     Dosage: 400 MG/DAY

REACTIONS (6)
  - AGITATION [None]
  - BUNDLE BRANCH BLOCK RIGHT [None]
  - ELECTROCARDIOGRAM PR PROLONGATION [None]
  - ELECTROCARDIOGRAM QT PROLONGED [None]
  - HEART RATE INCREASED [None]
  - MENTAL DISORDER [None]
